FAERS Safety Report 16481603 (Version 2)
Quarter: 2019Q3

REPORT INFORMATION
  Report Type: Report from Study
  Country: IT (occurrence: IT)
  Receive Date: 20190627
  Receipt Date: 20190702
  Transmission Date: 20191004
  Serious: Yes (Death, Life-Threatening, Hospitalization, Other)
  Sender: FDA-Public Use
  Company Number: IT-ACCORD-134802

PATIENT
  Age: 69 Year
  Sex: Male

DRUGS (2)
  1. CICLOSPORIN [Suspect]
     Active Substance: CYCLOSPORINE
     Indication: IMMUNOSUPPRESSANT DRUG THERAPY
     Dosage: 3 MG/KG BID EV FROM DAY 0
     Dates: start: 2017
  2. MYCOPHENOLIC ACID. [Suspect]
     Active Substance: MYCOPHENOLIC ACID
     Indication: IMMUNOSUPPRESSANT DRUG THERAPY
     Dosage: FROM DAY 0
     Route: 048
     Dates: start: 2017

REACTIONS (9)
  - Haemorrhage [Fatal]
  - Staphylococcal infection [Unknown]
  - Klebsiella infection [Unknown]
  - Enterococcal infection [Unknown]
  - Multiple organ dysfunction syndrome [Fatal]
  - Renal impairment [Fatal]
  - Neutropenia [Not Recovered/Not Resolved]
  - Septic shock [Fatal]
  - Respiratory failure [Fatal]

NARRATIVE: CASE EVENT DATE: 2017
